FAERS Safety Report 8828209 (Version 3)
Quarter: 2012Q4

REPORT INFORMATION
  Report Type: 
  Country: US (occurrence: US)
  Receive Date: 20121005
  Receipt Date: 20121226
  Transmission Date: 20130627
  Serious: Yes (Hospitalization)
  Sender: FDA-Public Use
  Company Number: US-ELI_LILLY_AND_COMPANY-US201210001281

PATIENT
  Sex: Male

DRUGS (3)
  1. HUMATROPE [Suspect]
     Indication: DWARFISM
     Dosage: 12 mg, unknown
     Dates: start: 20120808
  2. METFORMIN [Concomitant]
     Dosage: 1000 mg, bid
  3. CLOMID [Concomitant]
     Dosage: 25 mg, qd

REACTIONS (2)
  - Guillain-Barre syndrome [Recovering/Resolving]
  - Viral infection [Recovering/Resolving]
